FAERS Safety Report 12359752 (Version 1)
Quarter: 2016Q2

REPORT INFORMATION
  Report Type: Report from Study
  Country: ES (occurrence: ES)
  Receive Date: 20160512
  Receipt Date: 20160512
  Transmission Date: 20160815
  Serious: Yes (Other)
  Sender: FDA-Public Use
  Company Number: ES-JNJFOC-20150619914

PATIENT
  Sex: Male
  Weight: 70 kg

DRUGS (14)
  1. NOCTAMID [Concomitant]
     Active Substance: LORMETAZEPAM
     Route: 048
  2. IBRUTINIB [Suspect]
     Active Substance: IBRUTINIB
     Indication: MANTLE CELL LYMPHOMA
     Route: 048
     Dates: start: 201408
  3. ACOVIL [Concomitant]
     Active Substance: PHENIRAMINE
     Route: 048
  4. IBRUTINIB [Suspect]
     Active Substance: IBRUTINIB
     Indication: MANTLE CELL LYMPHOMA
     Route: 048
  5. IBRUTINIB [Suspect]
     Active Substance: IBRUTINIB
     Indication: MANTLE CELL LYMPHOMA
     Route: 048
  6. IBRUTINIB [Suspect]
     Active Substance: IBRUTINIB
     Indication: MANTLE CELL LYMPHOMA
     Route: 048
     Dates: start: 201406, end: 20150623
  7. VENTOLIN [Concomitant]
     Active Substance: ALBUTEROL SULFATE
  8. TROMALYT [Concomitant]
     Active Substance: ASPIRIN
     Route: 048
  9. MIRTAZAPINA [Concomitant]
     Active Substance: MIRTAZAPINE
     Route: 048
  10. PULMICORT TURBUHALER [Concomitant]
     Active Substance: BUDESONIDE
     Route: 055
  11. ACOVIL [Concomitant]
     Active Substance: PHENIRAMINE
  12. OMEPRAZOLE. [Concomitant]
     Active Substance: OMEPRAZOLE
     Route: 048
  13. ADOLONTA [Concomitant]
     Active Substance: TRAMADOL HYDROCHLORIDE
     Route: 048
  14. ALLOPURINOL. [Concomitant]
     Active Substance: ALLOPURINOL

REACTIONS (1)
  - Neutrophilic dermatosis [Recovering/Resolving]
